FAERS Safety Report 4657609-X (Version None)
Quarter: 2005Q2

REPORT INFORMATION
  Report Type: 
  Country: None (occurrence: None)
  Receive Date: 20050506
  Receipt Date: 20050502
  Transmission Date: 20051028
  Serious: Yes (Other)
  Sender: FDA-Public Use
  Company Number: 141908USA

PATIENT
  Age: 17 Year
  Sex: Male

DRUGS (6)
  1. MINOCYCLINE HCL [Suspect]
     Indication: ACNE
     Dosage: 100 MILLIGRAM BID ORAL
     Route: 048
     Dates: start: 20040810, end: 20050328
  2. FLOVENT [Concomitant]
  3. SERAVENT [Concomitant]
  4. ALBUTEROL [Concomitant]
  5. ALLEGRA [Concomitant]
  6. SINGULAIR [Concomitant]

REACTIONS (5)
  - CSF TEST ABNORMAL [None]
  - DIZZINESS [None]
  - FALL [None]
  - SOMNOLENCE [None]
  - VOMITING [None]
